FAERS Safety Report 9194634 (Version 1)
Quarter: 2013Q1

REPORT INFORMATION
  Report Type: Spontaneous
  Country: US (occurrence: US)
  Receive Date: 20130328
  Receipt Date: 20130328
  Transmission Date: 20140127
  Serious: No
  Sender: FDA-Public Use
  Company Number: US-ALLERGAN-1209504US

PATIENT
  Sex: Female

DRUGS (4)
  1. LATISSE 0.03% [Suspect]
     Indication: GROWTH OF EYELASHES
     Dosage: UNK, QHS
     Route: 061
     Dates: start: 201205
  2. ASPIRIN [Concomitant]
     Indication: HEART RATE IRREGULAR
     Dosage: 81 MG, QOD
     Route: 048
     Dates: start: 201111
  3. MAGNESIUM [Concomitant]
     Indication: HEART RATE IRREGULAR
     Dosage: UNK UNK, QD
     Route: 048
     Dates: start: 201111
  4. REFRESH LIQUIGEL [Concomitant]
     Indication: CONJUNCTIVAL DEPOSIT
     Dosage: 1 GTT, UNK

REACTIONS (3)
  - Incorrect dose administered [Unknown]
  - Madarosis [Not Recovered/Not Resolved]
  - Madarosis [Not Recovered/Not Resolved]
